FAERS Safety Report 4630918-6 (Version None)
Quarter: 2005Q2

REPORT INFORMATION
  Report Type: 
  Country: None (occurrence: None)
  Receive Date: 20050408
  Receipt Date: 20050308
  Transmission Date: 20051028
  Serious: Yes (Hospitalization)
  Sender: FDA-Public Use
  Company Number: AT-ROCHE-397719

PATIENT
  Sex: Male
  Weight: 67 kg

DRUGS (9)
  1. PEG-INTRON [Suspect]
     Dosage: DOSAGE FORM REPORTED AS SYRINGE
     Route: 058
     Dates: start: 20040421
  2. RIBAVIRIN [Suspect]
     Route: 048
     Dates: start: 20040421
  3. MOVICOL [Concomitant]
     Dates: start: 20040204
  4. AERIUS [Concomitant]
     Dates: start: 20040804
  5. DIBONDRIN [Concomitant]
     Dates: start: 20040804
  6. DIPRODERM [Concomitant]
     Dates: start: 20040804
  7. ERYPO [Concomitant]
     Dates: start: 20050107
  8. NEUPOGEN [Concomitant]
     Dates: start: 20050124
  9. PANTOPRAZOLE SODIUM [Concomitant]
     Dates: start: 20050215

REACTIONS (1)
  - ABSCESS LIMB [None]
